FAERS Safety Report 6461922-3 (Version None)
Quarter: 2009Q4

REPORT INFORMATION
  Report Type: 
  Country: None (occurrence: None)
  Receive Date: 20091130
  Receipt Date: 20091126
  Transmission Date: 20100525
  Serious: Yes (Death, Hospitalization)
  Sender: FDA-Public Use
  Company Number: PHHY2009JP34890

PATIENT
  Age: 72 Year
  Sex: Female

DRUGS (4)
  1. NEORAL [Suspect]
     Indication: GLOMERULONEPHRITIS MEMBRANOUS
     Dosage: 100 MG DAILY
     Route: 048
     Dates: start: 20090525, end: 20090602
  2. NEORAL [Suspect]
     Dosage: 75 MG DAILY
     Route: 048
     Dates: start: 20090602, end: 20090601
  3. NEORAL [Suspect]
     Dosage: 100 MG DAILY
     Route: 048
     Dates: start: 20090522
  4. PREDONINE [Concomitant]
     Indication: NEPHROTIC SYNDROME
     Route: 048

REACTIONS (3)
  - DRUG LEVEL INCREASED [None]
  - TREATMENT NONCOMPLIANCE [None]
  - TUBERCULOSIS [None]
